FAERS Safety Report 23694972 (Version 1)
Quarter: 2024Q2

REPORT INFORMATION
  Report Type: Spontaneous
  Country: US (occurrence: US)
  Receive Date: 20240402
  Receipt Date: 20240402
  Transmission Date: 20240716
  Serious: No
  Sender: FDA-Public Use
  Company Number: US-AMGEN-USASP2024062544

PATIENT
  Age: 82 Year
  Sex: Male

DRUGS (1)
  1. ARANESP [Suspect]
     Active Substance: DARBEPOETIN ALFA
     Indication: Product used for unknown indication
     Dosage: UNK(ARANESP DOSED 50 MONTHLY FOR A PERIOD THEN CHANGED TO 22.5 EVERY OTHER WEEK )
     Route: 065
     Dates: start: 20231201

REACTIONS (5)
  - Red blood cell count abnormal [Unknown]
  - Haemoglobin increased [Unknown]
  - Platelet count decreased [Unknown]
  - Dyspnoea [Unknown]
  - Glucose tolerance impaired [Unknown]
